FAERS Safety Report 22600736 (Version 3)
Quarter: 2023Q2

REPORT INFORMATION
  Report Type: Spontaneous
  Country: US (occurrence: US)
  Receive Date: 20230614
  Receipt Date: 20230626
  Transmission Date: 20230721
  Serious: Yes (Hospitalization)
  Sender: FDA-Public Use
  Company Number: US-PFIZER INC-PV202300061776

PATIENT
  Age: 78 Year
  Sex: Female
  Weight: 96.16 kg

DRUGS (7)
  1. IBRANCE [Suspect]
     Active Substance: PALBOCICLIB
     Indication: Metastases to bone
     Dosage: 125 MG, 1X/DAY
     Dates: start: 202301
  2. ATORVASTATIN CALCIUM [Suspect]
     Active Substance: ATORVASTATIN CALCIUM
     Dosage: 10 MILLIGRAM, QD
     Dates: start: 2020
  3. LEVOTHYROXINE SODIUM [Suspect]
     Active Substance: LEVOTHYROXINE SODIUM
     Indication: Thyroid disorder
     Dosage: 50 UG, DAILY
     Dates: start: 1994
  4. FASLODEX [Suspect]
     Active Substance: FULVESTRANT
     Indication: Neoplasm malignant
     Dosage: 250 MG
     Dates: start: 202210
  5. INSULIN HUMAN [Concomitant]
     Active Substance: INSULIN HUMAN
     Dosage: 100 IU/ML
     Dates: start: 1994
  6. LOSARTAN POTASSIUM [Concomitant]
     Active Substance: LOSARTAN POTASSIUM
     Dosage: UNK
     Dates: start: 2000
  7. XGEVA [Concomitant]
     Active Substance: DENOSUMAB
     Indication: Bone disorder
     Dosage: 125 MG
     Dates: start: 202210

REACTIONS (3)
  - Acute kidney injury [Recovered/Resolved]
  - Escherichia sepsis [Recovered/Resolved]
  - Circumstance or information capable of leading to medication error [Unknown]
